FAERS Safety Report 6244402-X (Version None)
Quarter: 2009Q2

REPORT INFORMATION
  Report Type: 
  Country: None (occurrence: None)
  Receive Date: 20090625
  Receipt Date: 20090615
  Transmission Date: 20091009
  Serious: Yes (Life-Threatening)
  Sender: FDA-Public Use
  Company Number: CN-WYE-H09844709

PATIENT
  Age: 62 Year
  Sex: Female

DRUGS (1)
  1. CORDARONE [Suspect]
     Indication: ATRIAL FIBRILLATION
     Dosage: 150 MG DILUTED IN 100 ML OF 5% GLUCOSE AT RATE OF 200 ML/HR
     Route: 042
     Dates: start: 20041105, end: 20041105

REACTIONS (1)
  - ANAPHYLACTIC SHOCK [None]
